FAERS Safety Report 6005774-4 (Version None)
Quarter: 2008Q4

REPORT INFORMATION
  Report Type: 
  Country: None (occurrence: None)
  Receive Date: 20081215
  Receipt Date: 20081209
  Transmission Date: 20090506
  Serious: Yes (Death, Other)
  Sender: FDA-Public Use
  Company Number: 2008JP005714

PATIENT
  Age: 57 Year
  Sex: Female
  Weight: 36 kg

DRUGS (11)
  1. TACROLIMUS [Suspect]
     Indication: LIVER TRANSPLANT
     Dosage: 0.05 MG/KG, D
  2. MOXIFLOXACIN HCL [Concomitant]
  3. FLUCONAZOLE [Concomitant]
  4. GANCICLOVIR [Concomitant]
  5. MYCOPHENOLATE MOFETIL [Concomitant]
  6. METHYLPREDNISOLONE 16MG TAB [Concomitant]
  7. BASILIXIMAB (BASILIXIMAB) [Concomitant]
  8. OCTREOTIDE (OCTREOTIDE) INJECTION [Concomitant]
  9. PANTOPRAZOLE SODIUM [Concomitant]
  10. NIFEDIPINE [Concomitant]
  11. IMMUNE GLOBULIN (HUMAN) [Concomitant]

REACTIONS (17)
  - ALANINE AMINOTRANSFERASE INCREASED [None]
  - ASCITES [None]
  - BLOOD CREATININE INCREASED [None]
  - BLOOD PRESSURE INADEQUATELY CONTROLLED [None]
  - CHOLESTASIS [None]
  - COMPLICATIONS OF TRANSPLANTED LIVER [None]
  - HAEMOLYTIC ANAEMIA [None]
  - HAEMOLYTIC URAEMIC SYNDROME [None]
  - HEPATIC ATROPHY [None]
  - LIVER DISORDER [None]
  - MULTI-ORGAN FAILURE [None]
  - PLATELET COUNT DECREASED [None]
  - PORTAL HYPERTENSION [None]
  - PROCEDURAL HYPERTENSION [None]
  - PROTHROMBIN TIME PROLONGED [None]
  - URINARY CASTS PRESENT [None]
  - URINE OUTPUT DECREASED [None]
